FAERS Safety Report 12312500 (Version 2)
Quarter: 2016Q2

REPORT INFORMATION
  Report Type: Report from Study
  Country: US (occurrence: US)
  Receive Date: 20160428
  Receipt Date: 20160502
  Transmission Date: 20160815
  Serious: Yes (Other)
  Sender: FDA-Public Use
  Company Number: US-ROCHE-1644031

PATIENT
  Age: 71 Year
  Sex: Male
  Weight: 67.19 kg

DRUGS (9)
  1. ERIVEDGE [Suspect]
     Active Substance: VISMODEGIB
     Route: 065
     Dates: start: 20151008
  2. TRIAMTERENE. [Concomitant]
     Active Substance: TRIAMTERENE
     Route: 048
  3. ERIVEDGE [Suspect]
     Active Substance: VISMODEGIB
     Indication: BASAL CELL CARCINOMA
     Route: 048
     Dates: start: 20150810
  4. ERIVEDGE [Suspect]
     Active Substance: VISMODEGIB
     Dosage: EVERY OTHER DAY X 3 MONTH
     Route: 048
     Dates: start: 201508
  5. TAMSULOSIN [Concomitant]
     Active Substance: TAMSULOSIN
     Dosage: GENERIC FLOMAX
     Route: 048
  6. ERIVEDGE [Suspect]
     Active Substance: VISMODEGIB
     Route: 048
     Dates: start: 20160114
  7. SIMETHICONE (DIMETHICONE) [Concomitant]
     Active Substance: DIMETHICONE
     Indication: FLATULENCE
     Route: 048
     Dates: start: 201508
  8. FAMOTIDINE. [Concomitant]
     Active Substance: FAMOTIDINE
     Route: 048
     Dates: start: 201602
  9. ERIVEDGE [Suspect]
     Active Substance: VISMODEGIB
     Route: 048
     Dates: start: 20150918

REACTIONS (12)
  - Sinusitis [Recovered/Resolved]
  - Flatulence [Not Recovered/Not Resolved]
  - Prostate cancer [Not Recovered/Not Resolved]
  - Drug dose omission [Unknown]
  - Dysgeusia [Not Recovered/Not Resolved]
  - Diarrhoea [Unknown]
  - Weight decreased [Not Recovered/Not Resolved]
  - Nausea [Unknown]
  - Alopecia [Unknown]
  - Gastrointestinal disorder [Not Recovered/Not Resolved]
  - Ageusia [Unknown]
  - Gastrointestinal disorder [Not Recovered/Not Resolved]

NARRATIVE: CASE EVENT DATE: 20150925
